FAERS Safety Report 7261053-9 (Version None)
Quarter: 2011Q1

REPORT INFORMATION
  Report Type: 
  Country: None (occurrence: None)
  Receive Date: 20110130
  Receipt Date: 20101123
  Transmission Date: 20110831
  Serious: No
  Sender: FDA-Public Use
  Company Number: US-ABBOTT-10P-163-0687598-00

PATIENT
  Sex: Female
  Weight: 68.1 kg

DRUGS (5)
  1. HUMIRA [Suspect]
     Indication: ARTHRITIS REACTIVE
     Dates: start: 20100101, end: 20100801
  2. HUMIRA [Suspect]
     Indication: PSORIASIS
  3. HUMIRA [Suspect]
     Indication: SPINAL OSTEOARTHRITIS
  4. OMEPRAZOLE [Concomitant]
     Indication: GASTROOESOPHAGEAL REFLUX DISEASE
  5. LEVOXYL [Concomitant]
     Indication: PRODUCT USED FOR UNKNOWN INDICATION

REACTIONS (8)
  - GASTRIC DISORDER [None]
  - BRONCHIAL HYPERREACTIVITY [None]
  - INFLAMMATION [None]
  - ABDOMINAL PAIN [None]
  - COUGH [None]
  - RESPIRATORY TRACT INFECTION [None]
  - OESOPHAGOSCOPY ABNORMAL [None]
  - ABDOMINAL DISCOMFORT [None]
